FAERS Safety Report 7587690-X (Version None)
Quarter: 2011Q3

REPORT INFORMATION
  Report Type: 
  Country: None (occurrence: None)
  Receive Date: 20110704
  Receipt Date: 20110628
  Transmission Date: 20111222
  Serious: Yes (Death)
  Sender: FDA-Public Use
  Company Number: PHHY2011AU56930

PATIENT
  Age: 45 Year

DRUGS (2)
  1. METHADONE HCL [Suspect]
     Dosage: UNK
  2. CARBAMAZEPINE [Suspect]

REACTIONS (3)
  - TOXICITY TO VARIOUS AGENTS [None]
  - ACCIDENTAL POISONING [None]
  - OVERDOSE [None]
